FAERS Safety Report 24182445 (Version 3)
Quarter: 2025Q4

REPORT INFORMATION
  Report Type: Spontaneous
  Country: CA (occurrence: CA)
  Receive Date: 20240807
  Receipt Date: 20251120
  Transmission Date: 20260117
  Serious: Yes (Other)
  Sender: AUROBINDO
  Company Number: CA-AUROBINDO-AUR-APL-2024-038851

PATIENT
  Age: 65 Year
  Sex: Male
  Weight: 108 kg

DRUGS (10)
  1. ATORVASTATIN [Suspect]
     Active Substance: ATORVASTATIN
     Indication: Product used for unknown indication
     Dosage: 18 MILLIGRAM, ONCE A DAY
     Route: 065
  2. SILIQ [Suspect]
     Active Substance: BRODALUMAB
     Indication: Psoriasis
     Dosage: 210 MILLIGRAM, EVERY WEEK
  3. SILIQ [Suspect]
     Active Substance: BRODALUMAB
     Dosage: 210 MILLIGRAM (1 EVERY 2 WEEKS)
  4. SILIQ [Suspect]
     Active Substance: BRODALUMAB
     Dosage: 210 MILLIGRAM (1 EVERY 2 WEEKS)
  5. SILIQ [Suspect]
     Active Substance: BRODALUMAB
     Dosage: 210 MILLIGRAM
  6. ASPIRIN [Concomitant]
     Active Substance: ASPIRIN
     Indication: Product used for unknown indication
     Dosage: UNK
     Route: 065
  7. BISOPROLOL [Concomitant]
     Active Substance: BISOPROLOL
     Indication: Product used for unknown indication
     Dosage: 5 MILLIGRAM, ONCE A DAY
     Route: 065
  8. CLONAZEPAM [Concomitant]
     Active Substance: CLONAZEPAM
     Indication: Product used for unknown indication
     Dosage: UNK
     Route: 065
  9. PERINDOPRIL [Concomitant]
     Active Substance: PERINDOPRIL
     Indication: Myocardial infarction
     Dosage: 8 MILLIGRAM, ONCE A DAY
     Route: 065
  10. REPATHA [Concomitant]
     Active Substance: EVOLOCUMAB
     Indication: Blood cholesterol increased

REACTIONS (12)
  - Balance disorder [Not Recovered/Not Resolved]
  - Confusional state [Not Recovered/Not Resolved]
  - Disease recurrence [Not Recovered/Not Resolved]
  - Drug intolerance [Not Recovered/Not Resolved]
  - Fatigue [Not Recovered/Not Resolved]
  - Muscular weakness [Not Recovered/Not Resolved]
  - Myalgia [Not Recovered/Not Resolved]
  - Non-Hodgkin^s lymphoma [Not Recovered/Not Resolved]
  - Psoriasis [Not Recovered/Not Resolved]
  - Intentional product use issue [Not Recovered/Not Resolved]
  - Off label use [Not Recovered/Not Resolved]
  - Product storage error [Not Recovered/Not Resolved]
